FAERS Safety Report 6511637-8 (Version None)
Quarter: 2009Q4

REPORT INFORMATION
  Report Type: 
  Country: None (occurrence: None)
  Receive Date: 20091222
  Receipt Date: 20090504
  Transmission Date: 20100525
  Serious: Yes (Other)
  Sender: FDA-Public Use
  Company Number: US-ASTRAZENECA-2009UW11328

PATIENT
  Age: 454 Month
  Sex: Male
  Weight: 83.9 kg

DRUGS (2)
  1. CRESTOR [Suspect]
     Indication: BLOOD CHOLESTEROL
     Route: 048
     Dates: start: 20080801
  2. SYNTHROID [Concomitant]

REACTIONS (1)
  - ANGIOEDEMA [None]
